FAERS Safety Report 16766910 (Version 3)
Quarter: 2019Q3

REPORT INFORMATION
  Report Type: Spontaneous
  Country: CZ (occurrence: CZ)
  Receive Date: 20190903
  Receipt Date: 20190912
  Transmission Date: 20191005
  Serious: Yes (Other)
  Sender: FDA-Public Use
  Company Number: CZ-MYLANLABS-2019M1081665

PATIENT
  Age: 10 Year
  Sex: Female

DRUGS (2)
  1. ATORVASTATIN [Suspect]
     Active Substance: ATORVASTATIN
     Indication: HYPERCHOLESTEROLAEMIA
     Dosage: UNK
     Route: 048
     Dates: start: 201003
  2. ATORVASTATIN [Suspect]
     Active Substance: ATORVASTATIN
     Indication: TYPE IIB HYPERLIPIDAEMIA

REACTIONS (8)
  - Hepatic cirrhosis [Recovered/Resolved]
  - Condition aggravated [Recovered/Resolved]
  - Hepatic steatosis [Recovered/Resolved]
  - Portal fibrosis [Unknown]
  - Glycogen storage disorder [Recovered/Resolved]
  - Hepatic function abnormal [Recovered/Resolved]
  - Biopsy liver abnormal [Recovered/Resolved]
  - Liver function test abnormal [Recovered/Resolved]

NARRATIVE: CASE EVENT DATE: 2010
